FAERS Safety Report 9665569 (Version 1)
Quarter: 2013Q4

REPORT INFORMATION
  Report Type: Spontaneous
  Country: US (occurrence: None)
  Receive Date: 20131031
  Receipt Date: 20131031
  Transmission Date: 20140711
  Serious: Yes (Other)
  Sender: FDA-Public Use
  Company Number: None

PATIENT
  Age: 85 Year
  Sex: Female

DRUGS (1)
  1. SUTENT [Suspect]
     Dosage: 25MG DAILY PO FOR 14 DAYS 7 OFF
     Route: 048
     Dates: start: 20121110, end: 20131030

REACTIONS (1)
  - Malignant neoplasm progression [None]
